FAERS Safety Report 8520383-0 (Version None)
Quarter: 2012Q3

REPORT INFORMATION
  Report Type: 
  Country: None (occurrence: None)
  Receive Date: 20120719
  Receipt Date: 20120709
  Transmission Date: 20120928
  Serious: Yes (Hospitalization)
  Sender: FDA-Public Use
  Company Number: US-SANOFI-AVENTIS-2012SA042962

PATIENT
  Age: 54 Year
  Sex: Female
  Weight: 66.2 kg

DRUGS (17)
  1. METOPROLOL SUCCINATE [Concomitant]
     Indication: HYPERTENSION
     Route: 048
     Dates: start: 20110101
  2. LOMOTIL [Concomitant]
     Route: 048
     Dates: start: 20110101
  3. MORPHINE [Concomitant]
     Indication: PAIN
     Route: 048
     Dates: start: 20110101
  4. HYDROCORTISONE [Concomitant]
     Dates: start: 20110101
  5. FOSAMAX [Concomitant]
     Indication: OSTEOPENIA
     Route: 048
     Dates: start: 20110101
  6. LOVENOX [Suspect]
     Route: 058
     Dates: start: 20120613
  7. INVESTIGATIONAL DRUG [Suspect]
     Indication: ADRENOCORTICAL CARCINOMA
     Route: 048
     Dates: start: 20120425, end: 20120513
  8. CALCIUM [Concomitant]
     Route: 048
     Dates: start: 20110101
  9. METFORMIN HYDROCHLORIDE [Concomitant]
     Indication: CUSHING'S SYNDROME
     Route: 048
     Dates: start: 20100101
  10. CLONIDINE [Concomitant]
     Indication: HYPERTENSION
     Route: 048
     Dates: start: 20120418
  11. DEXLANSOPRAZOLE [Concomitant]
     Route: 048
     Dates: start: 20110101
  12. LOVENOX [Suspect]
     Indication: DEEP VEIN THROMBOSIS
     Route: 058
     Dates: start: 20100101, end: 20120513
  13. CELEXA [Concomitant]
     Indication: DEPRESSION
     Route: 048
     Dates: start: 20110101
  14. ALDACTONE [Concomitant]
     Indication: HYPERTENSION
     Dates: start: 20110101
  15. SUMATRIPTAN [Concomitant]
     Indication: MIGRAINE
     Route: 048
     Dates: start: 20110101
  16. PROCHLORPERAZINE [Concomitant]
     Indication: NAUSEA
     Route: 048
     Dates: start: 20110101
  17. METFORMIN HYDROCHLORIDE [Concomitant]
     Route: 048
     Dates: start: 20100101

REACTIONS (3)
  - HYPERTENSION [None]
  - HAEMATOMA [None]
  - ABDOMINAL PAIN [None]
